FAERS Safety Report 6049639-0 (Version None)
Quarter: 2009Q1

REPORT INFORMATION
  Report Type: 
  Country: None (occurrence: None)
  Receive Date: 20090121
  Receipt Date: 20080201
  Transmission Date: 20090719
  Serious: Yes (Other)
  Sender: FDA-Public Use
  Company Number: HQWYE971210JUL04

PATIENT
  Age: 55 Year
  Sex: Female

DRUGS (1)
  1. PREMPRO [Suspect]
     Indication: HORMONE REPLACEMENT THERAPY
     Dates: start: 19990101, end: 20010701

REACTIONS (1)
  - BREAST CANCER [None]
